FAERS Safety Report 7435432-0 (Version None)
Quarter: 2011Q2

REPORT INFORMATION
  Report Type: 
  Country: None (occurrence: None)
  Receive Date: 20110425
  Receipt Date: 20110419
  Transmission Date: 20111010
  Serious: Yes (Hospitalization)
  Sender: FDA-Public Use
  Company Number: FR-MERCK-1104FRA00107

PATIENT
  Age: 60 Year
  Sex: Male

DRUGS (5)
  1. ASPIRIN LYSINE [Concomitant]
     Route: 048
     Dates: start: 20040101
  2. ACETAMINOPHEN AND ASCORBIC ACID AND PHENIRAMINE MALEATE [Suspect]
     Indication: RHINORRHOEA
     Route: 048
     Dates: start: 20080101, end: 20080101
  3. SIMVASTATIN [Suspect]
     Route: 065
     Dates: start: 20080125, end: 20080129
  4. ZOCOR [Suspect]
     Route: 048
     Dates: start: 20040101, end: 20080124
  5. NAFRONYL OXALATE [Suspect]
     Route: 048
     Dates: start: 20040101, end: 20080129

REACTIONS (1)
  - DRUG RASH WITH EOSINOPHILIA AND SYSTEMIC SYMPTOMS [None]
